FAERS Safety Report 18203763 (Version 2)
Quarter: 2021Q4

REPORT INFORMATION
  Report Type: Spontaneous
  Country: US (occurrence: US)
  Receive Date: 20200827
  Receipt Date: 20211119
  Transmission Date: 20220303
  Serious: Yes (Other)
  Sender: FDA-Public Use
  Company Number: US-INDIVIOR LIMITED-INDV-125850-2020

PATIENT
  Sex: Male
  Weight: 62 kg

DRUGS (3)
  1. SUBLOCADE [Suspect]
     Active Substance: BUPRENORPHINE
     Indication: Drug use disorder
     Dosage: 300 MILLIGRAM, QMO(PATIENT RECEIVED SEVENTH INJECTION)
     Route: 058
     Dates: start: 20200109
  2. FENTANYL [Suspect]
     Active Substance: FENTANYL
     Indication: Product used for unknown indication
     Dosage: UNK
     Route: 065
     Dates: start: 202001
  3. XYLOCAINE                          /00033401/ [Concomitant]
     Indication: Injection site reaction
     Dosage: UNK
     Route: 061
     Dates: start: 202001

REACTIONS (6)
  - Injection site ulcer [Recovered/Resolved]
  - Drug delivery system removal [Recovered/Resolved]
  - Injection site discharge [Recovered/Resolved]
  - Injection site pain [Recovered/Resolved]
  - Fatigue [Not Recovered/Not Resolved]
  - Drug dependence [Recovered/Resolved]

NARRATIVE: CASE EVENT DATE: 20200101
